FAERS Safety Report 18039015 (Version 1)
Quarter: 2020Q3

REPORT INFORMATION
  Report Type: Report from Study
  Country: US (occurrence: US)
  Receive Date: 20200717
  Receipt Date: 20200717
  Transmission Date: 20201103
  Serious: Yes (Hospitalization)
  Sender: FDA-Public Use
  Company Number: US-MYLANLABS-2020M1064953

PATIENT
  Sex: Female

DRUGS (2)
  1. METHOTREXATE. [Suspect]
     Active Substance: METHOTREXATE
     Indication: PLASMA CELL MASTITIS
     Dosage: AVERAGE DOSE: 20MG
     Route: 048
  2. METHOTREXATE. [Suspect]
     Active Substance: METHOTREXATE
     Indication: PLASMA CELL MASTITIS
     Dosage: AVERAGE DOSE: 20MG
     Route: 058

REACTIONS (1)
  - Drug ineffective [Unknown]
